FAERS Safety Report 4797414-7 (Version None)
Quarter: 2005Q4

REPORT INFORMATION
  Report Type: 
  Country: None (occurrence: None)
  Receive Date: 20051013
  Receipt Date: 20051003
  Transmission Date: 20060501
  Serious: Yes (Hospitalization)
  Sender: FDA-Public Use
  Company Number: PHFR2005GB03272

PATIENT
  Sex: Male

DRUGS (3)
  1. TEGRETOL [Suspect]
     Indication: EPILEPSY
     Dosage: 400MG/DAY
     Route: 048
     Dates: start: 19700101
  2. RAMIPRIL [Concomitant]
     Dosage: 2.5MG/DAY
     Route: 048
  3. FRUSEMIDE [Concomitant]
     Dosage: 40MG/DAY
     Route: 048

REACTIONS (4)
  - ANTICONVULSANT TOXICITY [None]
  - BLOOD CALCIUM DECREASED [None]
  - BLOOD PARATHYROID HORMONE INCREASED [None]
  - DRUG LEVEL INCREASED [None]
